FAERS Safety Report 26148740 (Version 1)
Quarter: 2025Q4

REPORT INFORMATION
  Report Type: Report from Study
  Country: SG (occurrence: SG)
  Receive Date: 20251212
  Receipt Date: 20251212
  Transmission Date: 20260117
  Serious: Yes (Hospitalization, Other)
  Sender: SANOFI AVENTIS
  Company Number: SG-SA-SAC20230627000981

PATIENT
  Age: 50 Year
  Sex: Female
  Weight: 55.1 kg

DRUGS (25)
  1. DUPILUMAB [Suspect]
     Active Substance: DUPILUMAB
     Indication: Asthma
     Dosage: 600 MG, 1X
     Route: 058
     Dates: start: 20230524, end: 20230524
  2. DUPILUMAB [Suspect]
     Active Substance: DUPILUMAB
     Dosage: 300 MG, QOW
     Route: 058
     Dates: start: 20230607, end: 20230607
  3. DUPILUMAB [Suspect]
     Active Substance: DUPILUMAB
     Dosage: 300 MG, Q4W (EVERY 4 WEEKS )
     Route: 058
     Dates: start: 20230719, end: 20230802
  4. TIOTROPIUM [Concomitant]
     Active Substance: TIOTROPIUM
     Indication: Asthma
     Dosage: 2 PUFF
     Route: 055
     Dates: start: 20221130
  5. PREDNISOLONE [Concomitant]
     Active Substance: PREDNISOLONE
     Indication: Asthma
     Dosage: 10 MG
     Route: 048
     Dates: start: 20221130
  6. PREDNISOLONE [Concomitant]
     Active Substance: PREDNISOLONE
     Dosage: 10 MG
     Route: 048
     Dates: start: 20230101, end: 20230426
  7. PREDNISOLONE [Concomitant]
     Active Substance: PREDNISOLONE
     Dosage: 15 MG
     Route: 048
     Dates: start: 20230427, end: 20230606
  8. PREDNISOLONE [Concomitant]
     Active Substance: PREDNISOLONE
     Dosage: 5 MG
     Route: 048
     Dates: start: 20230607
  9. OMEPRAZOLE [Concomitant]
     Active Substance: OMEPRAZOLE
     Indication: Prophylaxis
     Dosage: 40 MG
     Route: 042
     Dates: start: 20221129, end: 20221129
  10. FLUTICASONE FUROATE\VILANTEROL TRIFENATATE [Concomitant]
     Active Substance: FLUTICASONE FUROATE\VILANTEROL TRIFENATATE
     Indication: Asthma
     Dosage: 1 INHALER
     Route: 055
     Dates: start: 20221130
  11. TRAMADOL HYDROCHLORIDE [Concomitant]
     Active Substance: TRAMADOL HYDROCHLORIDE
     Indication: Back pain
     Dosage: 150 MG, PRN
     Route: 048
     Dates: start: 20221130
  12. AMITRIPTYLINE HYDROCHLORIDE [Concomitant]
     Active Substance: AMITRIPTYLINE HYDROCHLORIDE
     Indication: Migraine
     Dosage: 20 MG
     Route: 048
     Dates: start: 20221215
  13. LORATADINE [Concomitant]
     Active Substance: LORATADINE
     Indication: Rhinitis allergic
     Dosage: 10 MG
     Route: 048
     Dates: start: 20221216, end: 20230408
  14. MONTELUKAST [Concomitant]
     Active Substance: MONTELUKAST
     Indication: Rhinitis allergic
     Dosage: 10 MG
     Route: 048
     Dates: start: 20221215
  15. METOCLOPRAMIDE HYDROCHLORIDE [Concomitant]
     Active Substance: METOCLOPRAMIDE HYDROCHLORIDE
     Indication: Prophylaxis
     Dosage: 30 MG, PRN
     Route: 048
     Dates: start: 20221218
  16. HYPROMELLOSES [Concomitant]
     Active Substance: HYPROMELLOSES
     Indication: Prophylaxis
     Dosage: 6 DROPS , PRN
     Dates: start: 20230607
  17. ALBUTEROL [Concomitant]
     Active Substance: ALBUTEROL
     Indication: Asthma
     Dosage: 2 PUFF, PRN
     Route: 055
     Dates: start: 20230208
  18. INFLUENZA VIRUS VACCINE QUADRIVALENT TYPE A+B [Concomitant]
     Active Substance: INFLUENZA VIRUS VACCINE QUADRIVALENT TYPE A+B
     Indication: Prophylaxis
     Dosage: 0.5 ML
     Route: 030
     Dates: start: 20230607
  19. ACETAMINOPHEN\ORPHENADRINE CITRATE [Concomitant]
     Active Substance: ACETAMINOPHEN\ORPHENADRINE CITRATE
     Indication: Plantar fasciitis
     Dosage: 6 DF, PRN
     Route: 048
     Dates: start: 20230224
  20. ACETAMINOPHEN\ORPHENADRINE CITRATE [Concomitant]
     Active Substance: ACETAMINOPHEN\ORPHENADRINE CITRATE
     Dosage: 6 DF
     Route: 048
     Dates: start: 20230705
  21. KETOPROFEN [Concomitant]
     Active Substance: KETOPROFEN
     Indication: Plantar fasciitis
     Dosage: 2 APPLICATION
     Dates: start: 20230224
  22. TOPIRAMATE [Concomitant]
     Active Substance: TOPIRAMATE
     Indication: Migraine
     Dosage: 25 MG
     Route: 048
     Dates: start: 20230302
  23. TRANEXAMIC ACID [Concomitant]
     Active Substance: TRANEXAMIC ACID
     Indication: Heavy menstrual bleeding
     Dosage: 3000 MG, PRN
     Route: 048
     Dates: start: 20230316
  24. CHLORTETRACYCLINE HYDROCHLORIDE [Concomitant]
     Active Substance: CHLORTETRACYCLINE HYDROCHLORIDE
     Indication: Chalazion
     Dosage: 3 APPLICATION
     Dates: start: 20230508
  25. MEPOLIZUMAB [Concomitant]
     Active Substance: MEPOLIZUMAB
     Indication: Asthma
     Dosage: UNK

REACTIONS (15)
  - Graves^ disease [Recovering/Resolving]
  - Palpitations [Recovering/Resolving]
  - Temperature intolerance [Recovering/Resolving]
  - Myalgia [Recovering/Resolving]
  - Decreased appetite [Recovering/Resolving]
  - Weight decreased [Recovering/Resolving]
  - Tremor [Recovering/Resolving]
  - Goitre [Recovering/Resolving]
  - Hyperparathyroidism primary [Not Recovered/Not Resolved]
  - Ocular hyperaemia [Recovered/Resolved]
  - Pain in extremity [Not Recovered/Not Resolved]
  - Anaemia [Not Recovered/Not Resolved]
  - Osteopenia [Not Recovered/Not Resolved]
  - Eye pruritus [Recovered/Resolved]
  - Arthralgia [Not Recovered/Not Resolved]

NARRATIVE: CASE EVENT DATE: 20230101
